FAERS Safety Report 10557939 (Version 2)
Quarter: 2014Q4

REPORT INFORMATION
  Report Type: Spontaneous
  Country: GB (occurrence: GB)
  Receive Date: 20141031
  Receipt Date: 20141120
  Transmission Date: 20150529
  Serious: Yes (Other)
  Sender: FDA-Public Use
  Company Number: GB-TEVA-517368ISR

PATIENT
  Age: 69 Year
  Sex: Female
  Weight: 101 kg

DRUGS (12)
  1. DIAZEPAM. [Concomitant]
     Active Substance: DIAZEPAM
  2. NICORANDIL [Concomitant]
     Active Substance: NICORANDIL
  3. WARFARIN [Suspect]
     Active Substance: WARFARIN
  4. AMITRIPTYLINE [Concomitant]
     Active Substance: AMITRIPTYLINE
  5. LANSOPRAZOLE. [Concomitant]
     Active Substance: LANSOPRAZOLE
  6. BISOPROLOL [Concomitant]
     Active Substance: BISOPROLOL
  7. METFORMIN [Concomitant]
     Active Substance: METFORMIN HYDROCHLORIDE
  8. ISOSORBIDE MONONITRATE EXTENDED RELEASE [Concomitant]
     Active Substance: ISOSORBIDE MONONITRATE
  9. SERTRALINE [Concomitant]
     Active Substance: SERTRALINE HYDROCHLORIDE
  10. FORXIGA [Interacting]
     Active Substance: DAPAGLIFLOZIN
     Indication: DIABETES MELLITUS
     Route: 048
     Dates: start: 20140616, end: 20140709
  11. FUROSEMIDE. [Concomitant]
     Active Substance: FUROSEMIDE
  12. SIMVASTATIN. [Concomitant]
     Active Substance: SIMVASTATIN

REACTIONS (2)
  - International normalised ratio increased [Unknown]
  - Drug interaction [Unknown]
